FAERS Safety Report 10347139 (Version 1)
Quarter: 2014Q3

REPORT INFORMATION
  Report Type: Report from Study
  Country: US (occurrence: US)
  Receive Date: 20140729
  Receipt Date: 20140729
  Transmission Date: 20150326
  Serious: Yes (Other)
  Sender: FDA-Public Use
  Company Number: US-ROCHE-1439189

PATIENT
  Age: 1 Year
  Sex: Male
  Weight: 11.3 kg

DRUGS (8)
  1. ROCALTROL [Concomitant]
     Active Substance: CALCITRIOL
     Dosage: STRENGTH : 1 MCG/ML.
     Route: 048
  2. FERROUS SULFATE [Concomitant]
     Active Substance: FERROUS SULFATE\FERROUS SULFATE, DRIED
     Dosage: STRENGTH : 75/MG/ML.
     Route: 048
  3. PREVACID [Concomitant]
     Active Substance: LANSOPRAZOLE
     Dosage: STRENGTH: 3 MG/ML
     Route: 048
  4. NUTROPIN AQ [Suspect]
     Active Substance: SOMATROPIN
     Indication: RENAL FAILURE CHRONIC
     Dosage: 20ML, 3 REFILL
     Route: 058
  5. ALBUTEROL. [Concomitant]
     Active Substance: ALBUTEROL
     Dosage: INHALE AS NEEDED.
     Route: 065
  6. SODIUM CHLORIDE. [Concomitant]
     Active Substance: SODIUM CHLORIDE
     Route: 048
  7. BICITRA [Concomitant]
     Active Substance: CITRIC ACID, 1-STEARYL ESTER\SODIUM CITRATE
     Dosage: 334-500 MG/5 ML
     Route: 048
  8. NUTRITIONAL SUPPLEMENT [Concomitant]
     Active Substance: DIETARY SUPPLEMENT
     Dosage: DUOCAL 1/4 TEASPOON PER OZ O FFORMULA
     Route: 048

REACTIONS (4)
  - Bronchitis [Unknown]
  - Failure to thrive [Unknown]
  - Hyperparathyroidism [Unknown]
  - Acidosis [Unknown]

NARRATIVE: CASE EVENT DATE: 201304
